FAERS Safety Report 7624674-7 (Version None)
Quarter: 2011Q3

REPORT INFORMATION
  Report Type: 
  Country: None (occurrence: None)
  Receive Date: 20110720
  Receipt Date: 20110718
  Transmission Date: 20111222
  Serious: No
  Sender: FDA-Public Use
  Company Number: US-B.I. PHARMACEUTICALS,INC./RIDGEFIELD-2011-BP-14966BP

PATIENT
  Sex: Female

DRUGS (6)
  1. ISOSORBIDE DINITRATE [Concomitant]
     Route: 048
  2. HYDROCODONE [Concomitant]
     Indication: PAIN IN EXTREMITY
     Route: 048
     Dates: start: 20110601
  3. PRADAXA [Suspect]
     Indication: ATRIAL FIBRILLATION
     Dosage: 300 MG
     Route: 048
     Dates: start: 20110606
  4. POTASSIUM [Concomitant]
     Route: 048
  5. ATENOLOL [Concomitant]
     Route: 048
  6. LASIX [Concomitant]
     Indication: OEDEMA
     Route: 048

REACTIONS (3)
  - SENSATION OF FOREIGN BODY [None]
  - OEDEMA PERIPHERAL [None]
  - INCISION SITE HAEMORRHAGE [None]
